FAERS Safety Report 5067814-9 (Version None)
Quarter: 2006Q3

REPORT INFORMATION
  Report Type: 
  Country: None (occurrence: None)
  Receive Date: 20060731
  Receipt Date: 20060717
  Transmission Date: 20061208
  Serious: Yes (Other)
  Sender: FDA-Public Use
  Company Number: 2006PV017673

PATIENT
  Age: 68 Year
  Sex: Female
  Weight: 72.5755 kg

DRUGS (4)
  1. BYETTA [Suspect]
     Indication: DIABETES MELLITUS NON-INSULIN-DEPENDENT
     Dosage: 5 MCG; BID; SC
     Route: 058
     Dates: start: 20060620
  2. LANTUS [Suspect]
     Dosage: 42 UNITS; QAM;
  3. AMARYL [Suspect]
     Dosage: SEE IMAGE
     Dates: end: 20060601
  4. AMARYL [Suspect]
     Dosage: SEE IMAGE
     Dates: start: 20060601

REACTIONS (5)
  - APHASIA [None]
  - HYPOGLYCAEMIA [None]
  - LOSS OF CONSCIOUSNESS [None]
  - WEIGHT DECREASED [None]
  - WEIGHT INCREASED [None]
